FAERS Safety Report 9812631 (Version 8)
Quarter: 2015Q3

REPORT INFORMATION
  Report Type: Report from Study
  Country: CA (occurrence: CA)
  Receive Date: 20140113
  Receipt Date: 20150915
  Transmission Date: 20151125
  Serious: Yes (Other)
  Sender: FDA-Public Use
  Company Number: CA-ROCHE-1218998

PATIENT
  Age: 53 Year
  Sex: Female
  Weight: 68.1 kg

DRUGS (19)
  1. RITUXAN [Suspect]
     Active Substance: RITUXIMAB
     Route: 042
     Dates: start: 20131018
  2. ROCALTROL [Concomitant]
     Active Substance: CALCITRIOL
  3. NOVO-SEMIDE [Concomitant]
     Route: 065
     Dates: start: 2011
  4. METHYLPREDNISOLONE. [Concomitant]
     Active Substance: METHYLPREDNISOLONE
     Route: 042
     Dates: start: 20130121
  5. SOLU-CORTEF [Concomitant]
     Active Substance: HYDROCORTISONE SODIUM SUCCINATE
     Route: 042
     Dates: start: 20131004
  6. FERROUS FUMARATE [Concomitant]
     Active Substance: FERROUS FUMARATE
  7. DIPHENHYDRAMINE HCL [Concomitant]
     Active Substance: DIPHENHYDRAMINE HYDROCHLORIDE
     Route: 048
     Dates: start: 20130121
  8. ACETAMINOPHEN. [Concomitant]
     Active Substance: ACETAMINOPHEN
     Route: 065
     Dates: start: 20131004
  9. SOLU-CORTEF [Concomitant]
     Active Substance: HYDROCORTISONE SODIUM SUCCINATE
     Indication: PREMEDICATION
     Route: 042
     Dates: start: 20130121
  10. CELLCEPT [Suspect]
     Active Substance: MYCOPHENOLATE MOFETIL\MYCOPHENOLATE MOFETIL HYDROCHLORIDE
     Indication: PRODUCT USED FOR UNKNOWN INDICATION
     Route: 065
     Dates: end: 20121030
  11. IRBESARTAN. [Concomitant]
     Active Substance: IRBESARTAN
  12. PREDNISONE. [Suspect]
     Active Substance: PREDNISONE
     Indication: PRODUCT USED FOR UNKNOWN INDICATION
     Route: 065
     Dates: end: 201306
  13. PANTOPRAZOLE [Concomitant]
     Active Substance: PANTOPRAZOLE SODIUM
  14. DIPHENHYDRAMINE HCL [Concomitant]
     Active Substance: DIPHENHYDRAMINE HYDROCHLORIDE
     Route: 048
     Dates: start: 20131004
  15. RITUXAN [Suspect]
     Active Substance: RITUXIMAB
     Indication: GRANULOMATOSIS WITH POLYANGIITIS
     Dosage: LAST DOSE TAKEN ON 13/JAN/2014?LAST DOSE TAKEN ON 22/OCT/2014
     Route: 042
     Dates: start: 20130121
  16. RITUXAN [Suspect]
     Active Substance: RITUXIMAB
     Indication: VASCULITIS
     Route: 042
     Dates: start: 20131004
  17. ATORVASTATIN [Concomitant]
     Active Substance: ATORVASTATIN
     Route: 065
     Dates: start: 2013
  18. ARANESP [Concomitant]
     Active Substance: DARBEPOETIN ALFA
     Route: 065
  19. ACETAMINOPHEN. [Concomitant]
     Active Substance: ACETAMINOPHEN
     Route: 048
     Dates: start: 20130121

REACTIONS (14)
  - Urinary tract infection [Unknown]
  - Weight decreased [Not Recovered/Not Resolved]
  - Ear discomfort [Unknown]
  - Blood cholesterol increased [Unknown]
  - Cholelithiasis [Unknown]
  - Gastric disorder [Unknown]
  - Cataract [Not Recovered/Not Resolved]
  - Blood calcium increased [Unknown]
  - Device leakage [Recovered/Resolved]
  - Arthralgia [Recovered/Resolved]
  - Drug hypersensitivity [Unknown]
  - Nephrolithiasis [Recovered/Resolved]
  - Hypoacusis [Recovered/Resolved]
  - Diabetes mellitus [Not Recovered/Not Resolved]

NARRATIVE: CASE EVENT DATE: 20130122
